FAERS Safety Report 19216073 (Version 7)
Quarter: 2022Q1

REPORT INFORMATION
  Report Type: Report from Study
  Country: CA (occurrence: CA)
  Receive Date: 20210505
  Receipt Date: 20220228
  Transmission Date: 20220423
  Serious: Yes (Hospitalization, Other)
  Sender: FDA-Public Use
  Company Number: PHHY2016CA069556

PATIENT
  Age: 59 Year
  Sex: Female

DRUGS (5)
  1. SANDOSTATIN LAR DEPOT [Suspect]
     Active Substance: OCTREOTIDE ACETATE
     Indication: Carcinoid tumour
     Dosage: 30 MG, QMO, EVERY 4 WEEKS
     Route: 030
     Dates: start: 20160517
  2. SANDOSTATIN LAR DEPOT [Suspect]
     Active Substance: OCTREOTIDE ACETATE
     Dosage: 30 MG, QMO, EVERY 4 WEEKS
     Route: 030
     Dates: start: 201606
  3. SANDOSTATIN LAR DEPOT [Suspect]
     Active Substance: OCTREOTIDE ACETATE
     Dosage: UNK UNK,ONCE (TEST DOSE)
     Route: 058
     Dates: start: 20160505, end: 20160505
  4. SULFAMETHOXAZOLE\TRIMETHOPRIM [Concomitant]
     Active Substance: SULFAMETHOXAZOLE\TRIMETHOPRIM
     Indication: Product used for unknown indication
     Dosage: 800 MG, BID
     Route: 048
  5. SULFAMETHOXAZOLE\TRIMETHOPRIM [Concomitant]
     Active Substance: SULFAMETHOXAZOLE\TRIMETHOPRIM
     Dosage: 160 MG,BID
     Route: 048

REACTIONS (16)
  - Abdominal pain [Recovered/Resolved]
  - Intestinal obstruction [Recovered/Resolved]
  - Breast cancer [Unknown]
  - Second primary malignancy [Unknown]
  - Cellulitis [Recovered/Resolved]
  - Muscle spasms [Unknown]
  - Myalgia [Unknown]
  - Blood pressure increased [Unknown]
  - Musculoskeletal chest pain [Recovered/Resolved]
  - Vitamin B12 deficiency [Unknown]
  - Breast mass [Unknown]
  - Diarrhoea [Not Recovered/Not Resolved]
  - Needle issue [Unknown]
  - Injection site pain [Recovering/Resolving]
  - Injection site rash [Unknown]
  - Cystitis [Unknown]

NARRATIVE: CASE EVENT DATE: 20160517
